FAERS Safety Report 10036542 (Version 1)
Quarter: 2014Q1

REPORT INFORMATION
  Report Type: Spontaneous
  Country: NL (occurrence: NL)
  Receive Date: 20140326
  Receipt Date: 20140326
  Transmission Date: 20141002
  Serious: Yes (Hospitalization)
  Sender: FDA-Public Use
  Company Number: NL-AMGEN-NLDSP2011070785

PATIENT
  Age: 79 Year
  Sex: Male

DRUGS (2)
  1. NEULASTA [Suspect]
     Indication: PROPHYLAXIS
     Dosage: 6 MG, 1X4W
     Route: 058
     Dates: start: 20110829
  2. ARANESP [Suspect]
     Indication: ANAEMIA
     Dosage: 6 MG, 1X1W
     Route: 058
     Dates: start: 20110927

REACTIONS (1)
  - Cardioversion [Unknown]
